FAERS Safety Report 7923370-6 (Version None)
Quarter: 2011Q4

REPORT INFORMATION
  Report Type: 
  Country: None (occurrence: None)
  Receive Date: 20111117
  Receipt Date: 20110202
  Transmission Date: 20120403
  Serious: No
  Sender: FDA-Public Use
  Company Number: US-AMGEN-USASP2011006340

PATIENT
  Age: 63 Year
  Sex: Female
  Weight: 92.971 kg

DRUGS (19)
  1. CALCIUM [Concomitant]
  2. AZATHIOPRINE [Concomitant]
     Dosage: 50 MG, UNK
  3. SUCRALFATE [Concomitant]
     Dosage: 1 MG, UNK
  4. ZANTAC                             /00550801/ [Concomitant]
     Dosage: 300 MG, UNK
  5. VITAMIN D [Concomitant]
     Dosage: 50000 UNIT, UNK
  6. ASPIRIN [Concomitant]
     Dosage: 81 MG, UNK
  7. NASAL                              /00070002/ [Concomitant]
     Dosage: UNK
  8. TUSSIONEX                          /00004701/ [Concomitant]
  9. GLUCOSAMIN CHONDR [Concomitant]
  10. NIFEDIPINE [Concomitant]
     Dosage: 60 MG, UNK
  11. MULTIVITAMIN                       /00097801/ [Concomitant]
  12. LYSINE [Concomitant]
     Dosage: 500 MG, UNK
  13. PREDNISONE TAB [Concomitant]
     Dosage: 10 MG, UNK
  14. ENBREL [Suspect]
     Indication: PRODUCT USED FOR UNKNOWN INDICATION
     Dosage: 25 MG, 2 TIMES/WK
  15. SYNTHROID [Concomitant]
     Dosage: 75 A?G, UNK
  16. LOVASTATIN [Concomitant]
     Dosage: 20 MG, UNK
  17. VITAMIN C                          /00008001/ [Concomitant]
     Dosage: 100 MG, UNK
  18. QVAR 40 [Concomitant]
     Dosage: 40 MG, UNK
  19. URSO FORTE [Concomitant]
     Dosage: 500 MG, UNK

REACTIONS (3)
  - INJECTION SITE PRURITUS [None]
  - INJECTION SITE REACTION [None]
  - INJECTION SITE SWELLING [None]
